FAERS Safety Report 5210678-0 (Version None)
Quarter: 2007Q1

REPORT INFORMATION
  Report Type: 
  Country: None (occurrence: None)
  Receive Date: 20070117
  Receipt Date: 20070115
  Transmission Date: 20070707
  Serious: Yes (Hospitalization)
  Sender: FDA-Public Use
  Company Number: JP-JPN-A200602828

PATIENT
  Age: 1 Year
  Sex: Male
  Weight: 12 kg

DRUGS (4)
  1. FLUTIDE AIR [Suspect]
     Indication: ASTHMA
     Dosage: 1250MCG TWICE PER DAY
     Route: 055
     Dates: start: 20060527
  2. ARDEPHYLLIN [Concomitant]
     Indication: ASTHMA
     Dosage: .24MG PER DAY
     Route: 048
     Dates: start: 20060527, end: 20060628
  3. UNKNOWN MEDICATION [Concomitant]
     Indication: RHINITIS
     Dosage: 4ML PER DAY
     Route: 045
     Dates: start: 20060527, end: 20060628
  4. LL [Concomitant]
     Dates: start: 20060623

REACTIONS (7)
  - LYMPHADENITIS [None]
  - LYMPHADENITIS BACTERIAL [None]
  - OEDEMA [None]
  - OVERDOSE [None]
  - PAIN [None]
  - PAROTITIS [None]
  - PYREXIA [None]
